FAERS Safety Report 5776913-5 (Version None)
Quarter: 2008Q2

REPORT INFORMATION
  Report Type: 
  Country: None (occurrence: None)
  Receive Date: 20080618
  Receipt Date: 20080609
  Transmission Date: 20081010
  Serious: Yes (Death)
  Sender: FDA-Public Use
  Company Number: B0482839A

PATIENT
  Age: 16 Year
  Sex: Female

DRUGS (1)
  1. PAROXETINE HCL [Suspect]
     Indication: DEPRESSION
     Route: 065

REACTIONS (3)
  - AGGRESSION [None]
  - COMPLETED SUICIDE [None]
  - INTENTIONAL SELF-INJURY [None]
